FAERS Safety Report 5633322-7 (Version None)
Quarter: 2008Q1

REPORT INFORMATION
  Report Type: 
  Country: None (occurrence: None)
  Receive Date: 20080221
  Receipt Date: 20080214
  Transmission Date: 20080703
  Serious: Yes (Other)
  Sender: FDA-Public Use
  Company Number: DE-JNJFOC-20080203413

PATIENT
  Age: 8 Decade
  Sex: Male

DRUGS (1)
  1. IONSYS [Suspect]
     Indication: DRUG USE FOR UNKNOWN INDICATION
     Route: 044

REACTIONS (1)
  - APPLICATION SITE NECROSIS [None]
